FAERS Safety Report 22345828 (Version 1)
Quarter: 2023Q2

REPORT INFORMATION
  Report Type: Spontaneous
  Country: ES (occurrence: None)
  Receive Date: 20230519
  Receipt Date: 20230519
  Transmission Date: 20230721
  Serious: Yes (Hospitalization)
  Sender: FDA-Public Use
  Company Number: 2023A108692

PATIENT
  Age: 81 Year
  Sex: Female

DRUGS (13)
  1. OMEPRAZOLE [Suspect]
     Active Substance: OMEPRAZOLE
     Indication: Chronic gastritis
     Dosage: 20MG 1-0-0
     Route: 048
     Dates: start: 20220110, end: 20220119
  2. METFORMIN HYDROCHLORIDE [Suspect]
     Active Substance: METFORMIN HYDROCHLORIDE
     Indication: Diabetes mellitus
     Route: 048
     Dates: start: 20190206, end: 20220119
  3. ENALAPRIL [Concomitant]
     Active Substance: ENALAPRIL
     Dosage: BREAKFAST AND DINNER
  4. DOXAZOSIN NEO [Concomitant]
     Dosage: AT DINNER
  5. LEVOTHYROXINE SODIUM [Concomitant]
     Active Substance: LEVOTHYROXINE SODIUM
     Dosage: MONDAY TO FRIDAY50UG/INHAL
  6. LEVOTHYROXINE SODIUM [Concomitant]
     Active Substance: LEVOTHYROXINE SODIUM
     Dosage: SATURDAYS AND SUNDAYS75UG/INHAL
  7. SIMVASTATIN [Concomitant]
     Active Substance: SIMVASTATIN
     Dosage: WITH DINNER
  8. BRIMVERA [Concomitant]
  9. TIMOLOL MALEATE\TRAVOPROST [Concomitant]
     Active Substance: TIMOLOL MALEATE\TRAVOPROST
  10. CALCIUM CARBONATE\CHOLECALCIFEROL [Concomitant]
     Active Substance: CALCIUM CARBONATE\CHOLECALCIFEROL
     Dosage: BREAKFAST AND DINNER
  11. JANUVIA [Concomitant]
     Active Substance: SITAGLIPTIN PHOSPHATE
     Dosage: AT BREAKFAST
  12. FAMOTIDINE [Concomitant]
     Active Substance: FAMOTIDINE
     Dosage: AT BREAKFAST
  13. FERROUS GLUCONATE [Concomitant]
     Active Substance: FERROUS GLUCONATE
     Dosage: AT BREAKFAST

REACTIONS (3)
  - Hyperkalaemia [Unknown]
  - Anaemia [Unknown]
  - Tubulointerstitial nephritis [Recovering/Resolving]

NARRATIVE: CASE EVENT DATE: 20220112
